FAERS Safety Report 9750515 (Version 2)
Quarter: 2013Q4

REPORT INFORMATION
  Report Type: Spontaneous
  Country: US (occurrence: US)
  Receive Date: 20131212
  Receipt Date: 20131212
  Transmission Date: 20140711
  Serious: No
  Sender: FDA-Public Use
  Company Number: US-GILEAD-2012-0054458

PATIENT
  Sex: Female

DRUGS (4)
  1. LETAIRIS [Suspect]
     Indication: PULMONARY HYPERTENSION
     Dosage: UNK
     Route: 048
  2. LETAIRIS [Suspect]
     Indication: EISENMENGER^S SYNDROME
  3. LETAIRIS [Suspect]
     Indication: UNEVALUABLE EVENT
  4. TYVASO [Concomitant]

REACTIONS (1)
  - Food allergy [Unknown]
